FAERS Safety Report 17453710 (Version 1)
Quarter: 2020Q1

REPORT INFORMATION
  Report Type: Spontaneous
  Country: US (occurrence: US)
  Receive Date: 20200224
  Receipt Date: 20200224
  Transmission Date: 20200409
  Serious: No
  Sender: FDA-Public Use
  Company Number: US-PFIZER INC-2017166409

PATIENT
  Age: 30 Year
  Sex: Male
  Weight: 68.4 kg

DRUGS (2)
  1. XYNTHA [Suspect]
     Active Substance: ANTIHEMOPHILIC FACTOR, HUMAN RECOMBINANT RESIDUES 743-1636 DELETED
     Indication: FACTOR VIII DEFICIENCY
     Dosage: 1400IU FOR MILD/MODERATE BLEEDING AND 2800 IU FOR SEVERE BLEEDS
  2. XYNTHA [Suspect]
     Active Substance: ANTIHEMOPHILIC FACTOR, HUMAN RECOMBINANT RESIDUES 743-1636 DELETED
     Dosage: 1400IU FOR MILD/MODERATE BLEEDING AND 2800 IU FOR SEVERE BLEEDS

REACTIONS (1)
  - Pruritus [Unknown]
